FAERS Safety Report 4903738-2 (Version None)
Quarter: 2006Q1

REPORT INFORMATION
  Report Type: 
  Country: None (occurrence: None)
  Receive Date: 20060208
  Receipt Date: 20050901
  Transmission Date: 20060701
  Serious: Yes (Hospitalization)
  Sender: FDA-Public Use
  Company Number: HQWYE263006SEP05

PATIENT
  Sex: Female

DRUGS (35)
  1. ENBREL [Suspect]
     Indication: RHEUMATOID ARTHRITIS
     Route: 058
     Dates: start: 20050519
  2. PREDNISOLONE [Suspect]
     Route: 048
     Dates: start: 20050317
  3. VOLTAREN [Suspect]
     Route: 048
     Dates: end: 20050728
  4. VOLTAREN [Suspect]
     Route: 054
     Dates: start: 20050728, end: 20050818
  5. TACROLIMUS [Concomitant]
     Route: 065
     Dates: start: 20050421, end: 20050425
  6. TACROLIMUS [Concomitant]
     Dates: start: 20050426, end: 20050602
  7. TACROLIMUS [Concomitant]
     Dates: start: 20051005, end: 20051019
  8. TACROLIMUS [Concomitant]
     Dates: start: 20051020
  9. ISONIAZID [Concomitant]
     Dates: start: 20050106
  10. SULFAMETHOXAZOLE + TRIMETHOPRIM [Concomitant]
  11. EPINASTINE HYDROCHLORIDE [Concomitant]
  12. CAMLEED [Concomitant]
  13. DEXAMETHASONE [Concomitant]
  14. GASTER [Concomitant]
  15. PRIMPERAN INJ [Concomitant]
  16. FERRUM [Concomitant]
  17. SUCRALFATE [Concomitant]
  18. DOMPERIDONE [Concomitant]
  19. SODIUM ALGINATE [Concomitant]
  20. PARIET [Concomitant]
  21. LAXOBERON [Concomitant]
  22. GLUCOSE INJECTION [Concomitant]
  23. SULPIRIDE [Concomitant]
  24. CLINDAMYCIN PHOSPHATE [Concomitant]
  25. MAGNESIUM OXIDE [Concomitant]
  26. FUNGIZONE [Concomitant]
  27. DAPSONE [Concomitant]
  28. SACCHARATED IRON OXIDE [Concomitant]
  29. BENFOTIAMINE/CYANOCOBALAMIN/PYRIDOXINE HYDROCHLORIDE [Concomitant]
  30. OMEPRAZOLE [Concomitant]
  31. CEFOTIAM HYDROCHLORIDE [Concomitant]
  32. PENTAZOCINE LACTATE [Concomitant]
  33. HYDROXYZINE [Concomitant]
  34. ERYTHROMYCIN LACTOBIONATE [Concomitant]
  35. LANSOPRAZOLE [Concomitant]

REACTIONS (2)
  - GASTRIC ULCER [None]
  - PRURIGO [None]
